FAERS Safety Report 25646572 (Version 1)
Quarter: 2025Q3

REPORT INFORMATION
  Report Type: Spontaneous
  Country: EU (occurrence: EU)
  Receive Date: 20250805
  Receipt Date: 20250805
  Transmission Date: 20251020
  Serious: Yes (Other)
  Sender: IDORSIA PHARMACEUTICALS
  Company Number: EU-IDORSIA-011354-2025-DE

PATIENT
  Age: 63 Year
  Sex: Female

DRUGS (1)
  1. QUVIVIQ [Suspect]
     Active Substance: DARIDOREXANT
     Indication: Insomnia
     Dosage: 50 MG, QD
     Route: 065

REACTIONS (1)
  - Peripheral paralysis [Recovered/Resolved]
